FAERS Safety Report 10721620 (Version 2)
Quarter: 2015Q1

REPORT INFORMATION
  Report Type: Spontaneous
  Country: CN (occurrence: CN)
  Receive Date: 20150119
  Receipt Date: 20150120
  Transmission Date: 20150721
  Serious: Yes (Other)
  Sender: FDA-Public Use
  Company Number: CN-JNJFOC-20150103976

PATIENT
  Age: 28 Year
  Sex: Male

DRUGS (2)
  1. TYLENOL EXTENDED RELIEF CAPLETS [Suspect]
     Active Substance: ACETAMINOPHEN
     Indication: PYREXIA
     Route: 048
     Dates: start: 20140802, end: 20140802
  2. CHINESE MEDICATION [Concomitant]
     Active Substance: UNSPECIFIED INGREDIENT
     Indication: UPPER RESPIRATORY TRACT INFECTION
     Route: 041
     Dates: start: 20140802, end: 20140802

REACTIONS (1)
  - Roseola [Recovering/Resolving]

NARRATIVE: CASE EVENT DATE: 20140803
